FAERS Safety Report 13323888 (Version 1)
Quarter: 2017Q1

REPORT INFORMATION
  Report Type: Spontaneous
  Country: US (occurrence: US)
  Receive Date: 20170310
  Receipt Date: 20170310
  Transmission Date: 20170428
  Serious: No
  Sender: FDA-Public Use
  Company Number: US-PERRIGO-16US021411

PATIENT
  Age: 4 Year
  Sex: Male
  Weight: 18.59 kg

DRUGS (2)
  1. IBUPROFEN. [Suspect]
     Active Substance: IBUPROFEN
     Indication: PYREXIA
     Dosage: 1 1/2 TABLET, SINGLE
     Route: 048
     Dates: start: 20161023, end: 20161023
  2. IBUPROFEN. [Suspect]
     Active Substance: IBUPROFEN
     Indication: OROPHARYNGEAL PAIN
     Dosage: 100 MG, PRN
     Route: 048
     Dates: start: 2014, end: 2016

REACTIONS (2)
  - Wrong technique in product usage process [Recovered/Resolved]
  - Oral discomfort [Recovered/Resolved]

NARRATIVE: CASE EVENT DATE: 20161023
